FAERS Safety Report 7286635-X (Version None)
Quarter: 2011Q1

REPORT INFORMATION
  Report Type: 
  Country: None (occurrence: None)
  Receive Date: 20110210
  Receipt Date: 20110201
  Transmission Date: 20110831
  Serious: Yes (Other)
  Sender: FDA-Public Use
  Company Number: JP-CELGENEUS-087-21880-10121090

PATIENT
  Sex: Female

DRUGS (23)
  1. KLARICID [Concomitant]
     Indication: PROPHYLAXIS
     Route: 048
     Dates: start: 20100831, end: 20100914
  2. SLOW-K [Concomitant]
     Indication: INSOMNIA
     Route: 048
     Dates: start: 20100831, end: 20100914
  3. REVLIMID [Suspect]
     Route: 048
     Dates: start: 20100922, end: 20100926
  4. DECADRON [Suspect]
     Indication: MULTIPLE MYELOMA
     Route: 048
     Dates: start: 20100831, end: 20100903
  5. AMLODIPINE [Concomitant]
     Indication: HYPERTENSION
     Route: 048
     Dates: start: 20100831, end: 20100914
  6. BROTIZOLAM [Concomitant]
     Indication: INSOMNIA
     Route: 048
     Dates: start: 20100831, end: 20100914
  7. GLYCYRON [Concomitant]
     Route: 048
     Dates: start: 20100831, end: 20100914
  8. REVLIMID [Suspect]
     Route: 048
     Dates: start: 20101129, end: 20101219
  9. MAGNESIUM OXIDE [Concomitant]
     Indication: PROPHYLAXIS
     Route: 048
     Dates: start: 20100831, end: 20100914
  10. CORTRIL [Concomitant]
     Indication: PROPHYLAXIS
     Route: 048
     Dates: start: 20100831, end: 20100914
  11. REVLIMID [Suspect]
     Route: 048
     Dates: start: 20100915, end: 20100921
  12. REVLIMID [Suspect]
     Route: 048
     Dates: start: 20101004, end: 20101024
  13. REVLIMID [Suspect]
     Route: 048
     Dates: start: 20101101, end: 20101121
  14. ASPIRIN [Concomitant]
     Indication: PROPHYLAXIS
     Route: 048
     Dates: start: 20100831, end: 20100914
  15. GLYCYRON [Concomitant]
  16. REVLIMID [Suspect]
     Indication: MULTIPLE MYELOMA
     Route: 048
     Dates: start: 20100831, end: 20100906
  17. MICARDIS [Concomitant]
     Indication: HYPERTENSION
     Route: 048
     Dates: start: 20100831, end: 20100914
  18. SLOW-K [Concomitant]
  19. REVLIMID [Suspect]
     Route: 048
     Dates: start: 20100927, end: 20101003
  20. REBAMIPIDE [Concomitant]
     Indication: PROPHYLAXIS
     Route: 048
     Dates: start: 20100831, end: 20100914
  21. TAKEPRON [Concomitant]
     Indication: PROPHYLAXIS
     Route: 048
     Dates: start: 20100831, end: 20100914
  22. BIOFERMIN [Concomitant]
     Indication: PROPHYLAXIS
     Route: 048
     Dates: start: 20100831, end: 20100914
  23. BROTIZOLAM [Concomitant]

REACTIONS (7)
  - BLOOD AMYLASE INCREASED [None]
  - BACK PAIN [None]
  - HEPATIC ENZYME INCREASED [None]
  - NEUROPATHY PERIPHERAL [None]
  - PHARYNGITIS [None]
  - NEUTROPHIL COUNT DECREASED [None]
  - THROMBOCYTOPENIA [None]
